FAERS Safety Report 17036180 (Version 1)
Quarter: 2019Q4

REPORT INFORMATION
  Report Type: Spontaneous
  Country: AT (occurrence: AT)
  Receive Date: 20191115
  Receipt Date: 20191115
  Transmission Date: 20200122
  Serious: Yes (Other)
  Sender: FDA-Public Use
  Company Number: AT-ASTRAZENECA-2019SF60177

PATIENT

DRUGS (12)
  1. BRILIQUE [Suspect]
     Active Substance: TICAGRELOR
     Route: 048
     Dates: start: 20190329
  2. PANTOPRAZOL [Suspect]
     Active Substance: PANTOPRAZOLE SODIUM
     Route: 065
  3. ISOPHANE INSULIN [Suspect]
     Active Substance: INSULIN NOS
     Dosage: UNK,10-12 IU IN THE EVENINGS (GOAL: NORMAL BLOOD GLUCOSIS { 140MG%)
     Route: 065
  4. BRILIQUE [Suspect]
     Active Substance: TICAGRELOR
     Route: 048
     Dates: start: 20190330
  5. THROMBO ASS [Suspect]
     Active Substance: ASPIRIN
     Route: 065
  6. CONCOR [Suspect]
     Active Substance: BISOPROLOL FUMARATE
     Route: 065
  7. ATORVASTATIN CALCIUM. [Suspect]
     Active Substance: ATORVASTATIN CALCIUM
     Route: 065
  8. PROCORALAN [Suspect]
     Active Substance: IVABRADINE
     Route: 065
     Dates: start: 20190330
  9. XIGDUO XR [Suspect]
     Active Substance: DAPAGLIFLOZIN PROPANEDIOL\METFORMIN HYDROCHLORIDE
     Route: 048
  10. LASIX [Suspect]
     Active Substance: FUROSEMIDE
     Dosage: 40.0MG AS REQUIRED
     Route: 065
  11. RAMIPRIL. [Suspect]
     Active Substance: RAMIPRIL
     Route: 065
     Dates: start: 20190330
  12. EUTHYROX [Suspect]
     Active Substance: LEVOTHYROXINE SODIUM
     Dosage: 100UG/INHAL DAILY
     Route: 065

REACTIONS (2)
  - Oedema peripheral [Unknown]
  - Cardiac failure [Unknown]

NARRATIVE: CASE EVENT DATE: 20190418
